FAERS Safety Report 4511918-3 (Version None)
Quarter: 2004Q4

REPORT INFORMATION
  Report Type: 
  Country: None (occurrence: None)
  Receive Date: 20041123
  Receipt Date: 20041109
  Transmission Date: 20050328
  Serious: Yes (Life-Threatening, Hospitalization, Other)
  Sender: FDA-Public Use
  Company Number: 2004-04571

PATIENT
  Age: 55 Year
  Sex: Female
  Weight: 65.8 kg

DRUGS (10)
  1. FERRLECIT [Suspect]
     Indication: ANAEMIA
     Dosage: APPROX.664 MG OVER 4 HRS, INTRAVENOUS
     Route: 036
     Dates: start: 20040904, end: 20040905
  2. ALPRAZOLAM [Concomitant]
  3. LISINOPRIL [Concomitant]
  4. LOPERAMIDE HCL [Concomitant]
  5. MAGNEISUM SULFATE (MAGNESIUM SULFATE) [Concomitant]
  6. SANDOSTATIN [Concomitant]
  7. PANTOPRAZOLE        (PRANTOPRAZOLE) [Concomitant]
  8. POTASSIUM CHLORIDE [Concomitant]
  9. EFFEXOR [Concomitant]
  10. CALCIUM GLUCONATE [Concomitant]

REACTIONS (15)
  - ACIDOSIS [None]
  - ALKALOSIS [None]
  - CARDIAC ARREST [None]
  - DEPRESSED LEVEL OF CONSCIOUSNESS [None]
  - HYPOTENSION [None]
  - INFUSION RELATED REACTION [None]
  - INTENTIONAL MISUSE [None]
  - MENTAL STATUS CHANGES [None]
  - NAUSEA [None]
  - OVERDOSE [None]
  - RESPIRATORY DISTRESS [None]
  - RETCHING [None]
  - SINUS TACHYCARDIA [None]
  - VENTRICULAR FIBRILLATION [None]
  - VOMITING [None]
